FAERS Safety Report 6619954-8 (Version None)
Quarter: 2010Q1

REPORT INFORMATION
  Report Type: 
  Country: None (occurrence: None)
  Receive Date: 20100304
  Receipt Date: 20100216
  Transmission Date: 20100710
  Serious: Yes (Death, Hospitalization)
  Sender: FDA-Public Use
  Company Number: KV200900011

PATIENT
  Age: 59 Year
  Sex: Male
  Weight: 141 kg

DRUGS (17)
  1. ISOSORBIDE MONONITRATE [Suspect]
     Indication: CHEST PAIN
     Dosage: 60 MG, BID, ORAL
     Route: 048
     Dates: start: 20081101, end: 20081120
  2. ISOSORBIDE MONONITRATE [Suspect]
     Indication: CORONARY ARTERY DISEASE
     Dosage: 60 MG, BID, ORAL
     Route: 048
     Dates: start: 20081101, end: 20081120
  3. ISOSORBIDE MONONITRATE [Suspect]
     Indication: CHEST PAIN
     Dosage: 120 MG, BID, ORAL
     Route: 048
     Dates: start: 20081124
  4. ISOSORBIDE MONONITRATE [Suspect]
     Indication: CORONARY ARTERY DISEASE
     Dosage: 120 MG, BID, ORAL
     Route: 048
     Dates: start: 20081124
  5. AMLODIPINE [Concomitant]
  6. ASPIRIN [Concomitant]
  7. LIPITOR [Concomitant]
  8. CARVEDILOL [Concomitant]
  9. PLAVIX [Concomitant]
  10. LASIX [Concomitant]
  11. NEURONTIN [Concomitant]
  12. AMARYL [Concomitant]
  13. NITROGLYCERIN [Concomitant]
  14. TRAZODONE HCL [Concomitant]
  15. OXYCONTIN [Concomitant]
  16. MELATONIN (MELATONIN) [Concomitant]
  17. SENNA /00142201/ (SENNA ALEXANDRINA) [Concomitant]

REACTIONS (22)
  - ARTERIOSCLEROSIS CORONARY ARTERY [None]
  - ASTHENIA [None]
  - BLOOD GLUCOSE INCREASED [None]
  - CHEST PAIN [None]
  - COLD SWEAT [None]
  - CONVULSION [None]
  - COUGH [None]
  - DYSPNOEA PAROXYSMAL NOCTURNAL [None]
  - FLUSHING [None]
  - LETHARGY [None]
  - METABOLIC ENCEPHALOPATHY [None]
  - MUSCLE TWITCHING [None]
  - NORMOCHROMIC NORMOCYTIC ANAEMIA [None]
  - OROPHARYNGEAL PAIN [None]
  - PALPITATIONS [None]
  - PRODUCT QUALITY ISSUE [None]
  - PYREXIA [None]
  - RENAL FAILURE ACUTE [None]
  - RESPIRATORY DISORDER [None]
  - TREMOR [None]
  - VERTIGO [None]
  - VISUAL IMPAIRMENT [None]
